FAERS Safety Report 15159209 (Version 2)
Quarter: 2018Q3

REPORT INFORMATION
  Report Type: Spontaneous
  Country: US (occurrence: US)
  Receive Date: 20180718
  Receipt Date: 20180917
  Transmission Date: 20181010
  Serious: Yes (Other)
  Sender: FDA-Public Use
  Company Number: US-BAYER-2018-135650

PATIENT
  Sex: Female
  Weight: 48.98 kg

DRUGS (1)
  1. KYLEENA [Suspect]
     Active Substance: LEVONORGESTREL
     Indication: CONTRACEPTION
     Dosage: 17.5 MCG/24HR, CONT
     Route: 015
     Dates: start: 20171101, end: 20180518

REACTIONS (3)
  - Embedded device [Recovered/Resolved]
  - Pain [Recovered/Resolved]
  - Ovarian cyst [Recovered/Resolved]
